FAERS Safety Report 10841410 (Version 4)
Quarter: 2015Q4

REPORT INFORMATION
  Report Type: Report from Study
  Country: US (occurrence: US)
  Receive Date: 20150220
  Receipt Date: 20151022
  Transmission Date: 20160304
  Serious: Yes (Other)
  Sender: FDA-Public Use
  Company Number: US-AMGEN-USASL2015015721

PATIENT
  Age: 81 Year
  Sex: Female

DRUGS (1)
  1. ENBREL [Suspect]
     Active Substance: ETANERCEPT
     Indication: PSORIASIS
     Dosage: 50 MG, QWK
     Route: 065
     Dates: start: 20140721

REACTIONS (10)
  - Pain in extremity [Not Recovered/Not Resolved]
  - Ear infection [Unknown]
  - Feeling hot [Unknown]
  - Varicose vein [Not Recovered/Not Resolved]
  - Hair growth abnormal [Unknown]
  - Hyperhidrosis [Unknown]
  - Psoriasis [Not Recovered/Not Resolved]
  - Hair texture abnormal [Unknown]
  - Injection site pain [Unknown]
  - Malaise [Unknown]
